FAERS Safety Report 18538638 (Version 3)
Quarter: 2021Q1

REPORT INFORMATION
  Report Type: Spontaneous
  Country: SK (occurrence: SK)
  Receive Date: 20201124
  Receipt Date: 20210114
  Transmission Date: 20210419
  Serious: Yes (Hospitalization, Other)
  Sender: FDA-Public Use
  Company Number: SK-PFIZER INC-2020460547

PATIENT
  Age: 50 Year
  Sex: Male

DRUGS (12)
  1. CISPLATIN. [Suspect]
     Active Substance: CISPLATIN
     Indication: MANTLE CELL LYMPHOMA
     Dosage: 6 CYCLES
     Route: 065
  2. BENDAMUSTINE [Suspect]
     Active Substance: BENDAMUSTINE
     Indication: MANTLE CELL LYMPHOMA
     Dosage: UNK
     Route: 065
  3. CYTARABINE. [Suspect]
     Active Substance: CYTARABINE
     Indication: MANTLE CELL LYMPHOMA
     Dosage: 2X2 G/M2
     Route: 065
  4. CYTARABINE. [Suspect]
     Active Substance: CYTARABINE
     Dosage: 2 X 4 G
  5. RITUXIMAB. [Suspect]
     Active Substance: RITUXIMAB
     Indication: MANTLE CELL LYMPHOMA
     Dosage: 375 MG/M2, MAINTANANCE THERAPY
     Route: 041
  6. DOXORUBICIN [Suspect]
     Active Substance: DOXORUBICIN
     Indication: MANTLE CELL LYMPHOMA
     Dosage: 6 CYCLES
     Route: 065
  7. ETOPOSIDE. [Suspect]
     Active Substance: ETOPOSIDE
     Indication: MANTLE CELL LYMPHOMA
     Dosage: UNK
     Route: 065
  8. CYCLOPHOSPHAMIDE. [Suspect]
     Active Substance: CYCLOPHOSPHAMIDE
     Indication: MANTLE CELL LYMPHOMA
     Dosage: 6 CYCLES
     Route: 065
  9. DEXAMETHASONE. [Suspect]
     Active Substance: DEXAMETHASONE
     Indication: MANTLE CELL LYMPHOMA
     Dosage: UNK
     Route: 065
  10. MELPHALAN. [Suspect]
     Active Substance: MELPHALAN
     Indication: MANTLE CELL LYMPHOMA
     Dosage: UNK
     Route: 065
  11. PREDNISONE. [Suspect]
     Active Substance: PREDNISONE
     Indication: MANTLE CELL LYMPHOMA
     Dosage: 6 CYCLES
     Route: 065
  12. VINCRISTINE [Suspect]
     Active Substance: VINCRISTINE
     Indication: MANTLE CELL LYMPHOMA
     Dosage: 6 CYCLES
     Route: 065

REACTIONS (6)
  - Stomatitis [Unknown]
  - Diarrhoea [Unknown]
  - Pseudomonas infection [Recovered/Resolved]
  - Herpes zoster [Recovered/Resolved]
  - Hypoacusis [Unknown]
  - Febrile neutropenia [Unknown]
